FAERS Safety Report 7421410-4 (Version None)
Quarter: 2011Q2

REPORT INFORMATION
  Report Type: 
  Country: None (occurrence: None)
  Receive Date: 20110418
  Receipt Date: 20110411
  Transmission Date: 20111010
  Serious: Yes (Hospitalization, Other)
  Sender: FDA-Public Use
  Company Number: BR-ROCHE-634811

PATIENT
  Sex: Female
  Weight: 65 kg

DRUGS (15)
  1. TOCILIZUMAB [Suspect]
     Route: 042
     Dates: start: 20100301
  2. TOCILIZUMAB [Suspect]
     Indication: RHEUMATOID ARTHRITIS
     Route: 042
     Dates: start: 20091001
  3. TOCILIZUMAB [Suspect]
     Route: 042
     Dates: start: 20091201
  4. METHOTREXATE [Concomitant]
  5. PRELONE [Concomitant]
     Indication: RHEUMATOID ARTHRITIS
  6. DORFLEX [Concomitant]
     Indication: ANALGESIC THERAPY
     Dosage: FREQUENCY: 3 TABLETS DAILY
     Route: 048
  7. TOCILIZUMAB [Suspect]
     Route: 042
     Dates: start: 20110304
  8. RITUXIMAB [Suspect]
     Indication: RHEUMATOID ARTHRITIS
     Dosage: DOSE: 100 MG/ML. FORM: INFUSIONS
     Route: 042
     Dates: start: 20080815, end: 20080830
  9. RITUXIMAB [Suspect]
     Route: 042
     Dates: start: 20090101, end: 20090101
  10. MAREVAN [Concomitant]
  11. IOSOL [Concomitant]
     Dosage: DRUG REPORTED AS ISOL D
  12. TOCILIZUMAB [Suspect]
     Dosage: DOSE: 8MG/KG (530 MG). FORM: INFUSION
     Route: 042
     Dates: start: 20091101
  13. TOCILIZUMAB [Suspect]
     Route: 042
     Dates: start: 20100901
  14. FELDENE [Concomitant]
     Indication: RHEUMATOID ARTHRITIS
     Dosage: FREQUENCY: 1 TABLET DAILY
     Route: 048
  15. FOLIN [Concomitant]
     Route: 048

REACTIONS (16)
  - PAIN IN EXTREMITY [None]
  - SWELLING [None]
  - THROMBOSIS [None]
  - OCULAR HYPERAEMIA [None]
  - PRURITUS [None]
  - OEDEMA PERIPHERAL [None]
  - MALAISE [None]
  - HYPERTENSION [None]
  - RHEUMATOID ARTHRITIS [None]
  - URTICARIA [None]
  - BLOOD CHOLESTEROL INCREASED [None]
  - PALLOR [None]
  - SKIN ATROPHY [None]
  - PAIN [None]
  - THERAPEUTIC RESPONSE DECREASED [None]
  - JOINT WARMTH [None]
